FAERS Safety Report 21367488 (Version 1)
Quarter: 2022Q3

REPORT INFORMATION
  Report Type: Report from Study
  Country: US (occurrence: US)
  Receive Date: 20220923
  Receipt Date: 20220923
  Transmission Date: 20221027
  Serious: Yes (Hospitalization)
  Sender: FDA-Public Use
  Company Number: US-ABBVIE-4127599

PATIENT
  Age: 65 Year
  Sex: Female
  Weight: 55.338 kg

DRUGS (4)
  1. VENCLEXTA [Suspect]
     Active Substance: VENETOCLAX
     Indication: Acute myeloid leukaemia
     Dosage: FOR 7 DAYS, LAST VENCLEXTA DOSE WAS ON 31 AUG 2022
     Route: 048
     Dates: start: 20220422
  2. MIRALAX [Concomitant]
     Active Substance: POLYETHYLENE GLYCOL 3350
     Indication: Constipation
     Dosage: 1 TABLESPOON ONCE A DAY IF NOT USING VENCLEXTA OR 1 TABLESPOON TWICE A DAY IF USING  VENCLEXTA
     Route: 048
     Dates: start: 202207
  3. TYLENOL [Concomitant]
     Active Substance: ACETAMINOPHEN
     Indication: Product used for unknown indication
     Dosage: AT NIGHT
  4. LACTULOSE [Concomitant]
     Active Substance: LACTULOSE
     Indication: Constipation
     Route: 048
     Dates: start: 202207

REACTIONS (10)
  - Constipation [Recovered/Resolved]
  - Upper limb fracture [Not Recovered/Not Resolved]
  - Pain in extremity [Not Recovered/Not Resolved]
  - Joint dislocation [Not Recovered/Not Resolved]
  - Pneumonia [Unknown]
  - Dysphagia [Not Recovered/Not Resolved]
  - Fall [Unknown]
  - Escherichia infection [Unknown]
  - Off label use [Unknown]
  - Gait disturbance [Not Recovered/Not Resolved]

NARRATIVE: CASE EVENT DATE: 20220422
